FAERS Safety Report 20257903 (Version 1)
Quarter: 2021Q4

REPORT INFORMATION
  Report Type: Report from Study
  Country: IT (occurrence: IT)
  Receive Date: 20211230
  Receipt Date: 20211230
  Transmission Date: 20220303
  Serious: Yes (Hospitalization)
  Sender: FDA-Public Use
  Company Number: None

PATIENT
  Age: 81 Year
  Sex: Female

DRUGS (2)
  1. SOTALOL [Suspect]
     Active Substance: SOTALOL
     Indication: Atrial flutter
     Dosage: 160 MILLIGRAM, QD
     Route: 048
     Dates: start: 20190101, end: 20211203
  2. FLECAINIDE [Suspect]
     Active Substance: FLECAINIDE
     Indication: Atrial flutter
     Dosage: 200 MILLIGRAM, QD
     Route: 048
     Dates: start: 20210501, end: 20211203

REACTIONS (1)
  - Presyncope [Recovering/Resolving]

NARRATIVE: CASE EVENT DATE: 20211203
